FAERS Safety Report 15482768 (Version 1)
Quarter: 2018Q4

REPORT INFORMATION
  Report Type: Spontaneous
  Country: US (occurrence: US)
  Receive Date: 20181003
  Receipt Date: 20181003
  Transmission Date: 20190205
  Serious: No
  Sender: FDA-Public Use
  Company Number: None

PATIENT
  Age: 62 Year
  Sex: Male
  Weight: 152.86 kg

DRUGS (1)
  1. INSULIN, ASPART 100 UNITSLML NOVO FLEXPEN [Suspect]
     Active Substance: INSULIN ASPART

REACTIONS (1)
  - Device malfunction [None]

NARRATIVE: CASE EVENT DATE: 20181003
